FAERS Safety Report 7156898-X (Version None)
Quarter: 2010Q4

REPORT INFORMATION
  Report Type: 
  Country: None (occurrence: None)
  Receive Date: 20101214
  Receipt Date: 20101201
  Transmission Date: 20110411
  Serious: Yes (Death, Other)
  Sender: FDA-Public Use
  Company Number: GXKR2010CH12988

PATIENT
  Age: 83 Year
  Sex: Female
  Weight: 40 kg

DRUGS (11)
  1. AMIODARONE (NGX) [Suspect]
     Dosage: 100 MG, QD  (IN MORNING)
     Route: 065
  2. AZITHROMYCIN [Suspect]
     Indication: RESPIRATORY TRACT INFECTION
     Dosage: 500 MG, QD (IN MORNING)
  3. HYDROCHLOROTHIAZIDE [Concomitant]
     Dosage: 12.5 MG, (IN MORNING)
  4. NEBIVOLOL [Concomitant]
     Dosage: 5 MG, QD (IN MORNING)
     Route: 065
  5. FOSINOPRIL SODIUM [Concomitant]
     Dosage: 20 MG, QD (IN MORNING)
     Route: 065
  6. METFORMIN [Concomitant]
     Dosage: 1000 MG, BID (ONCE MORNING AND EVENING)
  7. INSULIN MIXTARD [Concomitant]
     Dosage: 12 IU, QD (IN MORNING)
     Route: 065
  8. INSULIN INSULATARD NPH NORDISK [Concomitant]
     Dosage: 12 IU, QD (IN EVENING)
     Route: 065
  9. SALMETEROL [Concomitant]
     Dosage: 50 PG, BID(IN MORNING AND EVENING)
  10. TRIMIPRAMINE MALEATE [Concomitant]
     Dosage: 100 MG, QD IN EVENING
  11. FLUTICASONE PROPIONATE [Concomitant]
     Dosage: 500 PG, BID (1 IN MORNING, 1 IN EVENING)

REACTIONS (13)
  - BUNDLE BRANCH BLOCK RIGHT [None]
  - CARDIAC ARREST [None]
  - CARDIOVERSION [None]
  - CIRCULATORY COLLAPSE [None]
  - COMA [None]
  - DIZZINESS [None]
  - GENERAL PHYSICAL HEALTH DETERIORATION [None]
  - HYPERTENSIVE HEART DISEASE [None]
  - HYPOTHYROIDISM [None]
  - OEDEMA PERIPHERAL [None]
  - UNRESPONSIVE TO STIMULI [None]
  - VENTRICULAR ARRHYTHMIA [None]
  - VENTRICULAR FIBRILLATION [None]
